FAERS Safety Report 17083436 (Version 1)
Quarter: 2019Q4

REPORT INFORMATION
  Report Type: Spontaneous
  Country: IT (occurrence: IT)
  Receive Date: 20191127
  Receipt Date: 20191127
  Transmission Date: 20200122
  Serious: Yes (Other)
  Sender: FDA-Public Use
  Company Number: IT-FRESENIUS KABI-FK201913091

PATIENT
  Age: 72 Year
  Sex: Male

DRUGS (4)
  1. IRINOTECAN (MANUFACTURER UNKNOWN) [Suspect]
     Active Substance: IRINOTECAN
     Indication: RECTAL CANCER METASTATIC
     Dosage: DAY 1,15
     Route: 065
  2. BEVACIZUMAB. [Suspect]
     Active Substance: BEVACIZUMAB
     Indication: RECTAL CANCER METASTATIC
     Dosage: DAY 1,15
     Route: 065
  3. FLUOROURACIL SODIUM [Suspect]
     Active Substance: FLUOROURACIL SODIUM
     Indication: RECTAL CANCER METASTATIC
     Dosage: 900 MG/MQ/DAY; DAY 1-2, 8-9, 15-16, 22-23
     Route: 065
  4. OXALIPLATIN (MANUFACTURER UNKNOWN) [Suspect]
     Active Substance: OXALIPLATIN
     Indication: RECTAL CANCER METASTATIC
     Dosage: DAY 8,22
     Route: 065

REACTIONS (8)
  - Neurotoxicity [Unknown]
  - Alopecia [Unknown]
  - Diarrhoea [Unknown]
  - Epistaxis [Unknown]
  - Rhinitis [Unknown]
  - Nausea [Unknown]
  - Neutropenia [Unknown]
  - Asthenia [Unknown]
